FAERS Safety Report 6991470-3 (Version None)
Quarter: 2010Q3

REPORT INFORMATION
  Report Type: 
  Country: None (occurrence: None)
  Receive Date: 20100916
  Receipt Date: 20090831
  Transmission Date: 20110219
  Serious: No
  Sender: FDA-Public Use
  Company Number: US-WYE-H10804909

PATIENT
  Age: 83 Year
  Sex: Female
  Weight: 81.72 kg

DRUGS (1)
  1. ADVIL PM [Suspect]
     Indication: INSOMNIA
     Dosage: 2 CAPLETS AT HS
     Route: 048
     Dates: start: 20090827, end: 20090829

REACTIONS (2)
  - PAIN IN EXTREMITY [None]
  - TREMOR [None]
